FAERS Safety Report 22053534 (Version 1)
Quarter: 2023Q1

REPORT INFORMATION
  Report Type: Spontaneous
  Country: US (occurrence: None)
  Receive Date: 20230228
  Receipt Date: 20230228
  Transmission Date: 20230418
  Serious: Yes (Hospitalization)
  Sender: FDA-Public Use
  Company Number: None

PATIENT
  Sex: Female

DRUGS (1)
  1. TERIPARATIDE [Suspect]
     Active Substance: TERIPARATIDE
     Dosage: 20MCG DAILY SUBCUTANEOUS?
     Route: 058
     Dates: start: 202212

REACTIONS (1)
  - Ankle operation [None]

NARRATIVE: CASE EVENT DATE: 20230228
